FAERS Safety Report 5615120-3 (Version None)
Quarter: 2008Q1

REPORT INFORMATION
  Report Type: 
  Country: None (occurrence: None)
  Receive Date: 20080206
  Receipt Date: 20070605
  Transmission Date: 20080703
  Serious: No
  Sender: FDA-Public Use
  Company Number: A0654273A

PATIENT
  Sex: Male

DRUGS (4)
  1. ARIXTRA [Suspect]
     Dosage: 7.5MG PER DAY
     Route: 058
     Dates: start: 20070604
  2. COUMADIN [Concomitant]
  3. PERCOCET [Concomitant]
  4. UNKNOWN MEDICATION [Concomitant]

REACTIONS (4)
  - DRUG ADMINISTRATION ERROR [None]
  - GENITAL LESION [None]
  - SKIN LESION [None]
  - TONGUE DISORDER [None]
